FAERS Safety Report 19781340 (Version 3)
Quarter: 2021Q3

REPORT INFORMATION
  Report Type: Spontaneous
  Country: US (occurrence: US)
  Receive Date: 20210902
  Receipt Date: 20210910
  Transmission Date: 20211014
  Serious: Yes (Hospitalization, Other)
  Sender: FDA-Public Use
  Company Number: US-MYLANLABS-2021M1057726

PATIENT
  Age: 54 Year
  Sex: Male

DRUGS (5)
  1. CLOZAPINE TABLETS, USP [Suspect]
     Active Substance: CLOZAPINE
     Dosage: 100 MILLIGRAM, BID
     Route: 048
  2. CLOZAPINE TABLETS, USP [Suspect]
     Active Substance: CLOZAPINE
     Dosage: UNK UNK, TID, 3 TIMES A DAY
     Route: 048
  3. CLOZAPINE TABLETS, USP [Suspect]
     Active Substance: CLOZAPINE
     Indication: SCHIZOPHRENIA
     Dosage: 3500 MILLIGRAM, QD
     Route: 048
  4. CLOZAPINE TABLETS, USP [Suspect]
     Active Substance: CLOZAPINE
     Dosage: UNK
     Dates: start: 2020
  5. RISPERIDONE. [Suspect]
     Active Substance: RISPERIDONE
     Indication: SCHIZOPHRENIA
     Dosage: UNK
     Route: 048

REACTIONS (25)
  - Loss of consciousness [Not Recovered/Not Resolved]
  - Hypotension [Not Recovered/Not Resolved]
  - Vomiting [Not Recovered/Not Resolved]
  - Constipation [Not Recovered/Not Resolved]
  - Blood test abnormal [Recovering/Resolving]
  - Dry mouth [Not Recovered/Not Resolved]
  - Dysarthria [Recovering/Resolving]
  - Necrotising fasciitis [Recovering/Resolving]
  - Off label use [Recovering/Resolving]
  - Pain [Recovering/Resolving]
  - White blood cell disorder [Unknown]
  - Salivary hypersecretion [Not Recovered/Not Resolved]
  - Cerebrovascular accident [Recovering/Resolving]
  - Furuncle [Recovering/Resolving]
  - Decreased appetite [Not Recovered/Not Resolved]
  - Lip swelling [Not Recovered/Not Resolved]
  - Speech disorder [Unknown]
  - Fatigue [Not Recovered/Not Resolved]
  - Oropharyngeal pain [Not Recovered/Not Resolved]
  - Dyspnoea [Not Recovered/Not Resolved]
  - Soft tissue disorder [Recovering/Resolving]
  - Drooling [Not Recovered/Not Resolved]
  - Feeling abnormal [Not Recovered/Not Resolved]
  - Vision blurred [Not Recovered/Not Resolved]
  - Hyperhidrosis [Not Recovered/Not Resolved]

NARRATIVE: CASE EVENT DATE: 20200928
